FAERS Safety Report 23113544 (Version 2)
Quarter: 2025Q4

REPORT INFORMATION
  Report Type: Spontaneous
  Country: US (occurrence: US)
  Receive Date: 20231027
  Receipt Date: 20251224
  Transmission Date: 20260118
  Serious: No
  Sender: PADAGIS
  Company Number: US-PADAGIS-2023PAD01485

PATIENT

DRUGS (1)
  1. MUPIROCIN [Suspect]
     Active Substance: MUPIROCIN
     Indication: Impetigo
     Dosage: UNK, BID
     Route: 065
     Dates: start: 20231003, end: 20231011

REACTIONS (5)
  - Skin exfoliation [Unknown]
  - Pruritus [Unknown]
  - Diarrhoea [Unknown]
  - Incorrect dose administered [Unknown]
  - Product prescribing error [Unknown]

NARRATIVE: CASE EVENT DATE: 20231001
